FAERS Safety Report 11517111 (Version 1)
Quarter: 2015Q3

REPORT INFORMATION
  Report Type: Spontaneous
  Country: US (occurrence: None)
  Receive Date: 20150916
  Receipt Date: 20150916
  Transmission Date: 20151125
  Serious: No
  Sender: FDA-Public Use
  Company Number: None

PATIENT
  Sex: Female

DRUGS (1)
  1. CARBOPLATIN 600MG/60ML HOSPIRA [Suspect]
     Active Substance: CARBOPLATIN
     Dosage: 546 Q3W IV
     Route: 042

REACTIONS (3)
  - Nausea [None]
  - Erythema [None]
  - Vomiting [None]

NARRATIVE: CASE EVENT DATE: 20150915
